FAERS Safety Report 21397905 (Version 1)
Quarter: 2022Q3

REPORT INFORMATION
  Report Type: Spontaneous
  Country: US (occurrence: US)
  Receive Date: 20220930
  Receipt Date: 20220930
  Transmission Date: 20221026
  Serious: Yes (Death, Other)
  Sender: FDA-Public Use
  Company Number: US-AMGEN-USASP2022167200

PATIENT

DRUGS (2)
  1. APREMILAST [Suspect]
     Active Substance: APREMILAST
     Indication: Psoriasis
     Dosage: 30 MILLIGRAM, BID
     Route: 065
  2. DEUCRAVACITINIB [Concomitant]
     Active Substance: DEUCRAVACITINIB
     Indication: Psoriasis
     Dosage: 6 MILLIGRAM, QD
     Route: 065

REACTIONS (20)
  - Neoplasm malignant [Unknown]
  - Gastrointestinal haemorrhage [Fatal]
  - Lung cancer metastatic [Fatal]
  - Infection [Unknown]
  - Cardiovascular disorder [Unknown]
  - Nasopharyngitis [Unknown]
  - Upper respiratory tract infection [Unknown]
  - Headache [Unknown]
  - Diarrhoea [Unknown]
  - Arthralgia [Unknown]
  - Blood creatine phosphokinase increased [Recovered/Resolved]
  - Pharyngitis [Unknown]
  - Hypertension [Unknown]
  - Psoriasis [Unknown]
  - Rhinitis [Unknown]
  - Sinusitis [Unknown]
  - Back pain [Unknown]
  - Nausea [Unknown]
  - Abdominal pain [Unknown]
  - Gastrooesophageal reflux disease [Unknown]
